FAERS Safety Report 9384293 (Version 2)
Quarter: 2013Q4

REPORT INFORMATION
  Report Type: Spontaneous
  Country: NL (occurrence: NL)
  Receive Date: 20130705
  Receipt Date: 20131008
  Transmission Date: 20140711
  Serious: Yes (Disabling, Other)
  Sender: FDA-Public Use
  Company Number: PHHY2013NL066551

PATIENT
  Age: 41 Year
  Sex: Female

DRUGS (8)
  1. GLIVEC [Suspect]
     Indication: GIANT CELL TUMOUR OF TENDON SHEATH
     Dosage: 400 MG/DAY
  2. GLIVEC [Suspect]
     Dosage: 200 MG/DAY
  3. GLIVEC [Suspect]
     Dosage: 200 MG/DAY
  4. GLIVEC [Suspect]
     Dosage: 200 MG/DAY
  5. GLIVEC [Suspect]
     Dosage: 400 UNK,(1DD1)
     Route: 048
     Dates: start: 200912
  6. GLIVEC [Suspect]
     Dosage: 200 UKN, (1DD1)
     Route: 048
     Dates: start: 200904
  7. SYMBICORT [Concomitant]
     Dosage: 400 UKN, EVERY DAY (400/12)
  8. ARTHOTEC [Concomitant]
     Dosage: 75 UKN, (2DD)

REACTIONS (8)
  - Ganglioneuroma [Unknown]
  - Ganglioglioma [Unknown]
  - Oligodendroglioma [Unknown]
  - Second primary malignancy [Unknown]
  - Glioneuronal tumour [Not Recovered/Not Resolved]
  - Headache [Not Recovered/Not Resolved]
  - Dizziness [Not Recovered/Not Resolved]
  - Ocular hyperaemia [Unknown]
